FAERS Safety Report 8530170 (Version 2)
Quarter: 2013Q2

REPORT INFORMATION
  Report Type: Report from Study
  Country: US (occurrence: US)
  Receive Date: 20120425
  Receipt Date: 20130412
  Transmission Date: 20140414
  Serious: Yes (Hospitalization)
  Sender: FDA-Public Use
  Company Number: PHHO2012US006029

PATIENT
  Age: 69 Year
  Sex: Female
  Weight: 71.5 kg

DRUGS (3)
  1. TASIGNA [Suspect]
     Indication: SYSTEMIC SCLEROSIS
     Dosage: 400 MG, BID
     Route: 048
     Dates: start: 20111031, end: 20120305
  2. TASIGNA [Suspect]
     Dosage: UNK
  3. TASIGNA [Suspect]
     Dosage: UNK

REACTIONS (1)
  - Arteriosclerosis coronary artery [Recovered/Resolved with Sequelae]
